FAERS Safety Report 5952652-2 (Version None)
Quarter: 2008Q4

REPORT INFORMATION
  Report Type: 
  Country: None (occurrence: None)
  Receive Date: 20081030
  Receipt Date: 20071126
  Transmission Date: 20090506
  Serious: Yes (Life-Threatening, Hospitalization)
  Sender: FDA-Public Use
  Company Number: 533428

PATIENT
  Age: 22 Year
  Sex: Male
  Weight: 49.9 kg

DRUGS (2)
  1. ALEVE (CAPLET) [Suspect]
     Indication: VACTERL SYNDROME
     Dosage: ORAL
     Route: 048
     Dates: start: 20070201
  2. ULTRAM [Suspect]
     Indication: VACTERL SYNDROME
     Dates: start: 20070201

REACTIONS (4)
  - DEHYDRATION [None]
  - GASTRIC ULCER HAEMORRHAGE [None]
  - MALNUTRITION [None]
  - VOMITING [None]
